FAERS Safety Report 20115339 (Version 1)
Quarter: 2021Q4

REPORT INFORMATION
  Report Type: Other
  Country: US (occurrence: None)
  Receive Date: 20211125
  Receipt Date: 20211125
  Transmission Date: 20220303
  Serious: Yes (Hospitalization)
  Sender: FDA-Public Use
  Company Number: US-Inventia-000156

PATIENT
  Age: 15 Year
  Sex: Female

DRUGS (5)
  1. FLUOXETINE [Interacting]
     Active Substance: FLUOXETINE HYDROCHLORIDE
     Indication: Obsessive-compulsive disorder
     Dosage: 40MG/DAY
  2. FIASP [Interacting]
     Active Substance: INSULIN ASPART
     Indication: Type 1 diabetes mellitus
  3. FLUOXETINE [Interacting]
     Active Substance: FLUOXETINE HYDROCHLORIDE
     Indication: Obsessive-compulsive disorder
     Dosage: 20MG/DAY
  4. FLUOXETINE [Interacting]
     Active Substance: FLUOXETINE HYDROCHLORIDE
     Indication: Major depression
     Dosage: 40MG/DAY
  5. FLUOXETINE [Interacting]
     Active Substance: FLUOXETINE HYDROCHLORIDE
     Indication: Major depression
     Dosage: 20MG/DAY

REACTIONS (4)
  - Serum sickness-like reaction [Recovering/Resolving]
  - Condition aggravated [Not Recovered/Not Resolved]
  - Drug interaction [Unknown]
  - Obsessive-compulsive disorder [Not Recovered/Not Resolved]
